FAERS Safety Report 8165123-2 (Version None)
Quarter: 2012Q1

REPORT INFORMATION
  Report Type: 
  Country: None (occurrence: None)
  Receive Date: 20120227
  Receipt Date: 20120222
  Transmission Date: 20120608
  Serious: No
  Sender: FDA-Public Use
  Company Number: US-PFIZER INC-2012037170

PATIENT
  Sex: Female
  Weight: 62 kg

DRUGS (1)
  1. IBUPROFEN (ADVIL) [Suspect]
     Indication: ARTHRITIS
     Dosage: UNK, 1X/DAY
     Route: 048
     Dates: start: 20020101

REACTIONS (2)
  - EXPIRED DRUG ADMINISTERED [None]
  - DRUG EFFECT DELAYED [None]
